FAERS Safety Report 17835304 (Version 1)
Quarter: 2020Q2

REPORT INFORMATION
  Report Type: Report from Study
  Country: US (occurrence: US)
  Receive Date: 20200528
  Receipt Date: 20200528
  Transmission Date: 20200714
  Serious: Yes (Hospitalization, Other)
  Sender: FDA-Public Use
  Company Number: US-GILEAD-2020-0469100

PATIENT
  Age: 36 Year
  Sex: Male

DRUGS (1)
  1. AZTREONAM LYSINE [Suspect]
     Active Substance: AZTREONAM LYSINE
     Indication: CYSTIC FIBROSIS
     Dosage: TIMES A DAY FOR 28 DAYS ON AND 28 DAYS OFF
     Route: 055
     Dates: start: 20191211

REACTIONS (2)
  - Cholecystectomy [Recovered/Resolved]
  - Product dose omission [Recovered/Resolved]
